FAERS Safety Report 5537888-7 (Version None)
Quarter: 2007Q4

REPORT INFORMATION
  Report Type: 
  Country: None (occurrence: None)
  Receive Date: 20071207
  Receipt Date: 20071127
  Transmission Date: 20080405
  Serious: Yes (Other)
  Sender: FDA-Public Use
  Company Number: US-PFIZER INC-2007085233

PATIENT
  Sex: Female

DRUGS (5)
  1. GEODON [Suspect]
     Dosage: DAILY DOSE:80MG
  2. CLONAZEPAM [Suspect]
  3. LAMICTAL [Suspect]
  4. XANAX [Concomitant]
  5. WELLBUTRIN [Concomitant]

REACTIONS (4)
  - DEPRESSION [None]
  - INSOMNIA [None]
  - MENTAL STATUS CHANGES [None]
  - PSYCHOMOTOR HYPERACTIVITY [None]
